FAERS Safety Report 14473684 (Version 1)
Quarter: 2018Q1

REPORT INFORMATION
  Report Type: Spontaneous
  Country: US (occurrence: US)
  Receive Date: 20180131
  Receipt Date: 20180131
  Transmission Date: 20180509
  Serious: No
  Sender: FDA-Public Use
  Company Number: None

PATIENT
  Age: 59 Year
  Sex: Female

DRUGS (1)
  1. IBRANCE [Suspect]
     Active Substance: PALBOCICLIB
     Indication: PRODUCT USED FOR UNKNOWN INDICATION
     Dosage: ONCE DAILY WITH FOOD 21 DAYS OF 28 DAY CYCLE
     Route: 048
     Dates: start: 20171130

REACTIONS (5)
  - Hyposmia [None]
  - Pruritus [None]
  - Oral herpes [None]
  - Blister [None]
  - Ageusia [None]

NARRATIVE: CASE EVENT DATE: 20171215
